FAERS Safety Report 20775058 (Version 1)
Quarter: 2022Q2

REPORT INFORMATION
  Report Type: Report from Study
  Country: DE (occurrence: DE)
  Receive Date: 20220502
  Receipt Date: 20220502
  Transmission Date: 20220720
  Serious: Yes (Hospitalization, Other)
  Sender: FDA-Public Use
  Company Number: DE-TAKEDA-DE201719728

PATIENT
  Sex: Male
  Weight: 72.7 kg

DRUGS (9)
  1. TEDUGLUTIDE [Suspect]
     Active Substance: TEDUGLUTIDE
     Indication: Short-bowel syndrome
     Dosage: 3.6 MILLIGRAM, QD
     Route: 042
     Dates: start: 20150724, end: 20171119
  2. TEDUGLUTIDE [Suspect]
     Active Substance: TEDUGLUTIDE
     Indication: Short-bowel syndrome
     Dosage: 3.6 MILLIGRAM, QD
     Route: 042
     Dates: start: 20150724, end: 20171119
  3. TEDUGLUTIDE [Suspect]
     Active Substance: TEDUGLUTIDE
     Indication: Short-bowel syndrome
     Dosage: 3.6 MILLIGRAM, QD
     Route: 042
     Dates: start: 20150724, end: 20171119
  4. TEDUGLUTIDE [Suspect]
     Active Substance: TEDUGLUTIDE
     Indication: Short-bowel syndrome
     Dosage: 3.6 MILLIGRAM, QD
     Route: 042
     Dates: start: 20150724, end: 20171119
  5. SELENASE                           /00075003/ [Concomitant]
     Indication: Mineral supplementation
     Dosage: 100 MICROGRAM, QD
     Route: 048
     Dates: start: 20160106, end: 20161221
  6. ZINKAMIN [Concomitant]
     Indication: Mineral supplementation
     Dosage: 94 MILLIGRAM, QD
     Route: 048
     Dates: start: 20160106
  7. COLESEVELAM HYDROCHLORIDE [Concomitant]
     Active Substance: COLESEVELAM HYDROCHLORIDE
     Indication: Diarrhoea
     Dosage: 1250 MILLIGRAM, TID
     Route: 048
     Dates: start: 20150422
  8. PANCRELIPASE [Concomitant]
     Active Substance: PANCRELIPASE
     Indication: Enzyme supplementation
     Dosage: UNK MG, UNK
     Route: 065
  9. TAZOBACTAM [Concomitant]
     Active Substance: TAZOBACTAM
     Indication: Vascular device infection
     Dosage: UNK
     Route: 065
     Dates: start: 20170629, end: 20170706

REACTIONS (1)
  - Vascular device infection [Recovered/Resolved]

NARRATIVE: CASE EVENT DATE: 20170628
